FAERS Safety Report 9978317 (Version 1)
Quarter: 2014Q1

REPORT INFORMATION
  Report Type: Spontaneous
  Country: US (occurrence: US)
  Receive Date: 20140306
  Receipt Date: 20140306
  Transmission Date: 20141002
  Serious: Yes (Death)
  Sender: FDA-Public Use
  Company Number: US-ROCHE-1361136

PATIENT
  Age: 73 Year
  Sex: Male
  Weight: 98.06 kg

DRUGS (2)
  1. XELODA [Suspect]
     Indication: RECTAL CANCER
     Dosage: 14 DAYS ON,7 DAYS OFF
     Route: 048
     Dates: start: 20131008
  2. WARFARIN [Concomitant]
     Route: 048

REACTIONS (1)
  - Death [Fatal]
